FAERS Safety Report 21057484 (Version 1)
Quarter: 2022Q3

REPORT INFORMATION
  Report Type: Spontaneous
  Country: US (occurrence: None)
  Receive Date: 20220707
  Receipt Date: 20220707
  Transmission Date: 20221027
  Serious: Yes (Hospitalization)
  Sender: FDA-Public Use
  Company Number: None

PATIENT
  Age: 45 Year
  Sex: Female

DRUGS (1)
  1. LUPRON DEPOT [Suspect]
     Active Substance: LEUPROLIDE ACETATE
     Indication: Endometriosis
     Dosage: 3.75MG EVERY 28 DAYS INTRAMUSCULARLY?
     Route: 030
     Dates: start: 20220427

REACTIONS (1)
  - Hysterectomy [None]

NARRATIVE: CASE EVENT DATE: 20220629
